FAERS Safety Report 25813348 (Version 2)
Quarter: 2025Q4

REPORT INFORMATION
  Report Type: Spontaneous
  Country: US (occurrence: US)
  Receive Date: 20250917
  Receipt Date: 20251107
  Transmission Date: 20260118
  Serious: No
  Sender: LUPIN
  Company Number: US-LUPIN PHARMACEUTICALS INC.-2025-08232

PATIENT
  Age: 16 Year

DRUGS (3)
  1. ALBUTEROL SULFATE [Suspect]
     Active Substance: ALBUTEROL SULFATE
     Indication: Cough
     Dosage: 2 PUFFS EVERY 4 TO 6 HOURS, PRN
  2. ALBUTEROL SULFATE [Suspect]
     Active Substance: ALBUTEROL SULFATE
     Indication: Wheezing
     Dosage: 2 PUFFS EVERY 4 TO 6 HOURS, PRN
  3. ALBUTEROL SULFATE [Suspect]
     Active Substance: ALBUTEROL SULFATE
     Indication: Asthma
     Dosage: 2 PUFFS EVERY 4 TO 6 HOURS, PRN

REACTIONS (6)
  - Drug dose omission by device [Unknown]
  - Device deposit issue [Unknown]
  - Wrong technique in product usage process [Unknown]
  - Device malfunction [Unknown]
  - Off label use [Unknown]
  - Device occlusion [Unknown]
